FAERS Safety Report 4345041-8 (Version None)
Quarter: 2004Q2

REPORT INFORMATION
  Report Type: 
  Country: None (occurrence: None)
  Receive Date: 20040420
  Receipt Date: 20040406
  Transmission Date: 20050107
  Serious: Yes (Hospitalization)
  Sender: FDA-Public Use
  Company Number: 2004CG00585

PATIENT
  Age: 53 Year
  Weight: 59 kg

DRUGS (5)
  1. IRESSA [Suspect]
     Indication: BREAST CANCER
     Dosage: 250 MG DAILY PO
     Route: 048
     Dates: start: 20040221
  2. TAXOTERE [Suspect]
     Indication: BREAST CANCER
     Dosage: 160 MG Q3WK IV
     Route: 042
     Dates: start: 20040220
  3. DI-ANTALVIC [Concomitant]
  4. OMEPRAZOLE [Concomitant]
  5. DAFLON [Concomitant]

REACTIONS (1)
  - FEBRILE NEUTROPENIA [None]
